FAERS Safety Report 17950157 (Version 7)
Quarter: 2022Q3

REPORT INFORMATION
  Report Type: Report from Study
  Country: SK (occurrence: SK)
  Receive Date: 20200626
  Receipt Date: 20220906
  Transmission Date: 20221027
  Serious: Yes (Hospitalization)
  Sender: FDA-Public Use
  Company Number: NVSC2020SK177515

PATIENT
  Age: 45 Year
  Sex: Male
  Weight: 94 kg

DRUGS (13)
  1. CANAKINUMAB [Suspect]
     Active Substance: CANAKINUMAB
     Indication: Non-small cell lung cancer
     Dosage: UNK
     Route: 058
     Dates: start: 20191025
  2. PEMBROLIZUMAB [Suspect]
     Active Substance: PEMBROLIZUMAB
     Indication: Non-small cell lung cancer
     Dosage: 200 MG
     Route: 042
     Dates: start: 20191025
  3. PEMETREXED DISODIUM [Suspect]
     Active Substance: PEMETREXED DISODIUM
     Indication: Non-small cell lung cancer
     Dosage: 1800 MG
     Route: 042
     Dates: start: 20191025
  4. CISPLATIN [Suspect]
     Active Substance: CISPLATIN
     Indication: Non-small cell lung cancer
     Dosage: 162 MG
     Route: 042
     Dates: start: 20191025
  5. OMEPRAZOLE [Concomitant]
     Active Substance: OMEPRAZOLE
     Indication: Prophylaxis
     Dosage: UNK
     Route: 065
     Dates: start: 20191029
  6. FENTANYL [Concomitant]
     Active Substance: FENTANYL
     Indication: Tumour pain
     Dosage: UNK
     Route: 065
     Dates: start: 20190927
  7. FOLIC ACID [Concomitant]
     Active Substance: FOLIC ACID
     Indication: General physical condition
     Dosage: UNK
     Route: 065
     Dates: start: 20190924
  8. BISEPTOL [Concomitant]
     Active Substance: SULFAMETHOXAZOLE\TRIMETHOPRIM
     Indication: Pneumonia
     Dosage: UNK
     Route: 065
     Dates: start: 20191113, end: 20191229
  9. VFEND [Concomitant]
     Active Substance: VORICONAZOLE
     Indication: Pneumonia
     Dosage: UNK
     Route: 065
     Dates: start: 20191113, end: 20191229
  10. DUPHALAC [Concomitant]
     Active Substance: LACTULOSE
     Indication: General physical condition
     Dosage: UNK
     Route: 065
     Dates: start: 20190927, end: 20200528
  11. METOCLOPRAMIDE HYDROCHLORIDE [Concomitant]
     Active Substance: METOCLOPRAMIDE HYDROCHLORIDE
     Indication: Prophylaxis of nausea and vomiting
     Dosage: UNK
     Route: 065
     Dates: start: 20190924, end: 20200528
  12. LAXYGAL [Concomitant]
     Indication: General physical condition
     Dosage: UNK
     Route: 065
     Dates: start: 20191002, end: 20200525
  13. NEBIVOLOL [Concomitant]
     Active Substance: NEBIVOLOL
     Indication: Hypertension
     Dosage: UNK
     Route: 065
     Dates: start: 2009, end: 20200528

REACTIONS (1)
  - Pyrexia [Recovered/Resolved]

NARRATIVE: CASE EVENT DATE: 20191205
